FAERS Safety Report 24263684 (Version 1)
Quarter: 2024Q3

REPORT INFORMATION
  Report Type: Spontaneous
  Country: US (occurrence: US)
  Receive Date: 20240829
  Receipt Date: 20240829
  Transmission Date: 20241016
  Serious: Yes (Hospitalization, Other)
  Sender: CSL BEHRING
  Company Number: US-BEH-2024177824

PATIENT
  Age: 70 Year
  Sex: Female

DRUGS (4)
  1. IDELVION [Suspect]
     Active Substance: COAGULATION FACTOR IX RECOMBINANT HUMAN
     Indication: Factor IX deficiency
     Dosage: 4488 IU, QW
     Route: 042
  2. IDELVION [Suspect]
     Active Substance: COAGULATION FACTOR IX RECOMBINANT HUMAN
     Indication: Factor IX deficiency
     Dosage: 4488 IU, QW
     Route: 042
  3. SALINE [Concomitant]
     Active Substance: SODIUM CHLORIDE
  4. HEPARIN SODIUM [Concomitant]
     Active Substance: HEPARIN SODIUM

REACTIONS (3)
  - Haemarthrosis [Unknown]
  - Road traffic accident [Unknown]
  - Fracture [Unknown]

NARRATIVE: CASE EVENT DATE: 20240817
